APPROVED DRUG PRODUCT: DISOPHROL
Active Ingredient: DEXBROMPHENIRAMINE MALEATE; PSEUDOEPHEDRINE SULFATE
Strength: 6MG;120MG
Dosage Form/Route: TABLET, EXTENDED RELEASE;ORAL
Application: N013483 | Product #004
Applicant: SCHERING PLOUGH HEALTHCARE PRODUCTS INC
Approved: Sep 13, 1982 | RLD: No | RS: No | Type: DISCN